FAERS Safety Report 9130398 (Version 1)
Quarter: 2013Q1

REPORT INFORMATION
  Report Type: Spontaneous
  Country: BR (occurrence: BR)
  Receive Date: 20130228
  Receipt Date: 20130228
  Transmission Date: 20140127
  Serious: Yes (Hospitalization)
  Sender: FDA-Public Use
  Company Number: BR-ASTRAZENECA-2013SE12069

PATIENT
  Sex: Male
  Weight: 82 kg

DRUGS (5)
  1. ROSUVASTATIN [Suspect]
     Indication: BLOOD CHOLESTEROL INCREASED
     Route: 048
     Dates: start: 201209
  2. BRILINTA [Suspect]
     Route: 048
     Dates: start: 201209
  3. VASTAREL [Concomitant]
     Route: 048
  4. BAMIFIX [Concomitant]
     Dosage: BID
     Route: 048
  5. ASPIRIN PREVENT [Concomitant]
     Route: 048
     Dates: start: 201209

REACTIONS (1)
  - Coronary artery occlusion [Recovered/Resolved]
